FAERS Safety Report 5783021-6 (Version None)
Quarter: 2008Q2

REPORT INFORMATION
  Report Type: 
  Country: None (occurrence: None)
  Receive Date: 20080619
  Receipt Date: 20080619
  Transmission Date: 20081010
  Serious: Yes (Hospitalization)
  Sender: FDA-Public Use
  Company Number: None

PATIENT
  Sex: Female
  Weight: 98.18 kg

DRUGS (4)
  1. CISPLATIN [Suspect]
     Dosage: 100 MG
  2. DOXORUBICIN HYDROCHLORIDE [Suspect]
     Dosage: 60 MG
  3. TAXOL [Suspect]
     Dosage: 250 MG
  4. NEULASTA [Suspect]
     Dosage: 6 MG

REACTIONS (18)
  - ABDOMINAL ADHESIONS [None]
  - ABDOMINAL PAIN [None]
  - ASCITES [None]
  - ASPARTATE AMINOTRANSFERASE INCREASED [None]
  - BLOOD ALKALINE PHOSPHATASE INCREASED [None]
  - BLOOD CALCIUM DECREASED [None]
  - BLOOD GLUCOSE INCREASED [None]
  - CARBON DIOXIDE DECREASED [None]
  - CLOSTRIDIAL INFECTION [None]
  - HAEMORRHAGE [None]
  - HEPARIN-INDUCED THROMBOCYTOPENIA [None]
  - HYPERTENSION [None]
  - HYPOTENSION [None]
  - NAUSEA [None]
  - RESPIRATORY DISORDER [None]
  - SINUS TACHYCARDIA [None]
  - SUPRAVENTRICULAR TACHYCARDIA [None]
  - VOMITING [None]
